FAERS Safety Report 4806540-5 (Version None)
Quarter: 2005Q4

REPORT INFORMATION
  Report Type: 
  Country: None (occurrence: None)
  Receive Date: 20051019
  Receipt Date: 20051005
  Transmission Date: 20060501
  Serious: Yes (Hospitalization)
  Sender: FDA-Public Use
  Company Number: 2005BI015587

PATIENT
  Age: 41 Year
  Sex: Male
  Weight: 63.5036 kg

DRUGS (1)
  1. AVONEX LIQUID [Suspect]
     Indication: MULTIPLE SCLEROSIS
     Dosage: 30 UG QW IM
     Route: 030
     Dates: start: 20050315

REACTIONS (9)
  - CELLULITIS [None]
  - COGNITIVE DISORDER [None]
  - CONDITION AGGRAVATED [None]
  - FALL [None]
  - GAIT DISTURBANCE [None]
  - HYPERSOMNIA [None]
  - MULTIPLE SCLEROSIS [None]
  - OEDEMA PERIPHERAL [None]
  - UPPER LIMB FRACTURE [None]
